FAERS Safety Report 5020753-1 (Version None)
Quarter: 2006Q2

REPORT INFORMATION
  Report Type: 
  Country: None (occurrence: None)
  Receive Date: 20060606
  Receipt Date: 20060603
  Transmission Date: 20061013
  Serious: Yes (Life-Threatening)
  Sender: FDA-Public Use
  Company Number: 224059

PATIENT
  Age: 53 Year
  Sex: Male
  Weight: 93.0327 kg

DRUGS (5)
  1. RAPTIVA [Suspect]
     Indication: PSORIASIS
     Dosage: 0.9 ML 1/WEEK SUBCUTANEOUS
     Route: 058
     Dates: start: 20060120, end: 20060217
  2. REMERON [Concomitant]
  3. LEXAPRO [Concomitant]
  4. NAPROXEN [Concomitant]
  5. NEXIUM [Concomitant]

REACTIONS (2)
  - DEEP VEIN THROMBOSIS [None]
  - PULMONARY EMBOLISM [None]
